FAERS Safety Report 19924745 (Version 3)
Quarter: 2021Q4

REPORT INFORMATION
  Report Type: Report from Study
  Country: UA (occurrence: UA)
  Receive Date: 20211006
  Receipt Date: 20211112
  Transmission Date: 20220303
  Serious: Yes (Other)
  Sender: FDA-Public Use
  Company Number: UA-BAYER-2021A218828

PATIENT

DRUGS (3)
  1. EYLEA [Suspect]
     Active Substance: AFLIBERCEPT
     Indication: Neovascular age-related macular degeneration
     Dosage: 2 MG
     Route: 031
     Dates: start: 20210828, end: 20210828
  2. EYLEA [Suspect]
     Active Substance: AFLIBERCEPT
     Dosage: 2 MG, LAST DOSE PRIOR THE EVENT
     Route: 031
     Dates: start: 20210923, end: 20210923
  3. EYLEA [Suspect]
     Active Substance: AFLIBERCEPT
     Dosage: 2 MG
     Route: 031
     Dates: start: 20211021, end: 20211021

REACTIONS (1)
  - Scleral haemorrhage [Recovered/Resolved]

NARRATIVE: CASE EVENT DATE: 20210923
